FAERS Safety Report 8545103-5 (Version None)
Quarter: 2012Q3

REPORT INFORMATION
  Report Type: 
  Country: None (occurrence: None)
  Receive Date: 20120727
  Receipt Date: 20120327
  Transmission Date: 20120928
  Serious: Yes (Other)
  Sender: FDA-Public Use
  Company Number: US-JNJCP-30000097393

PATIENT
  Age: 18 Year
  Sex: Female
  Weight: 78 kg

DRUGS (1)
  1. NTG OIL-FREE ACNE WASH PNKGRPFRT FM SCRB USA 070501053607 [Suspect]
     Dosage: QUARTER SIZE AMOUNT, ONCE A DAY
     Route: 061
     Dates: end: 20120327

REACTIONS (4)
  - ACNE COSMETICA [None]
  - PRODUCT QUALITY ISSUE [None]
  - STAPHYLOCOCCAL ABSCESS [None]
  - SCAR [None]
